FAERS Safety Report 10342264 (Version 1)
Quarter: 2014Q3

REPORT INFORMATION
  Report Type: Spontaneous
  Country: FR (occurrence: FR)
  Receive Date: 20140725
  Receipt Date: 20140725
  Transmission Date: 20150326
  Serious: Yes (Hospitalization)
  Sender: FDA-Public Use
  Company Number: FR-009507513-1407FRA008449

PATIENT
  Age: 92 Year
  Sex: Female

DRUGS (11)
  1. EUPHYTOSE (BLACK HOREHOUND (+) GUARANA (+) HAWTHORN (+) KOLA (+) PASSI [Concomitant]
  2. PANTOPRAZOLE [Concomitant]
     Active Substance: PANTOPRAZOLE SODIUM
  3. JANUMET [Suspect]
     Active Substance: METFORMIN HYDROCHLORIDE\SITAGLIPTIN PHOSPHATE
     Indication: TYPE 2 DIABETES MELLITUS
     Dosage: 2 DF, QD
     Route: 048
  4. CADUET [Concomitant]
     Active Substance: AMLODIPINE BESYLATE\ATORVASTATIN CALCIUM
  5. EBIXA [Concomitant]
     Active Substance: MEMANTINE HYDROCHLORIDE
  6. PROZAC [Concomitant]
     Active Substance: FLUOXETINE HYDROCHLORIDE
  7. TENORMIN [Concomitant]
     Active Substance: ATENOLOL
  8. NOVO-NORM [Suspect]
     Active Substance: REPAGLINIDE
     Indication: TYPE 2 DIABETES MELLITUS
     Dosage: 3 DF, QD
     Route: 048
     Dates: end: 20140612
  9. KARDEGIC [Concomitant]
     Active Substance: ASPIRIN LYSINE
  10. APROVEL [Concomitant]
     Active Substance: IRBESARTAN
  11. AERIUS [Concomitant]
     Active Substance: DESLORATADINE

REACTIONS (3)
  - Malaise [Recovered/Resolved]
  - VIIth nerve paralysis [Recovered/Resolved]
  - Speech disorder [Recovered/Resolved]

NARRATIVE: CASE EVENT DATE: 20140510
